FAERS Safety Report 4567040-3 (Version None)
Quarter: 2005Q1

REPORT INFORMATION
  Report Type: 
  Country: None (occurrence: None)
  Receive Date: 20050201
  Receipt Date: 20041122
  Transmission Date: 20050727
  Serious: Yes (Other)
  Sender: FDA-Public Use
  Company Number: US-BRISTOL-MYERS SQUIBB COMPANY-12772935

PATIENT
  Age: 47 Year
  Sex: Male

DRUGS (6)
  1. STADOL [Suspect]
     Route: 045
     Dates: start: 19970417, end: 20010901
  2. HYDROCODONE + ACETAMINOPHEN [Concomitant]
  3. CARISOPRODOL [Concomitant]
  4. METHOCARBAMOL [Concomitant]
  5. BUTALBITAL [Concomitant]
  6. ULTRAM [Concomitant]

REACTIONS (1)
  - DEPENDENCE [None]
